FAERS Safety Report 17216004 (Version 1)
Quarter: 2019Q4

REPORT INFORMATION
  Report Type: Spontaneous
  Country: GB (occurrence: GB)
  Receive Date: 20191230
  Receipt Date: 20191230
  Transmission Date: 20200122
  Serious: Yes (Other)
  Sender: FDA-Public Use
  Company Number: GB-MYLANLABS-2019M1130396

PATIENT
  Age: 79 Year
  Sex: Female
  Weight: 44 kg

DRUGS (13)
  1. DERMOL                             /01330701/ [Concomitant]
     Dosage: USE AS SOAP SUBSTITUTE
     Dates: start: 20151110
  2. CANDESARTAN. [Concomitant]
     Active Substance: CANDESARTAN
     Dosage: 1 DOSAGE FORM, QD
     Dates: start: 20181112
  3. RANITIDINE. [Concomitant]
     Active Substance: RANITIDINE
     Dosage: AT NIGHT (TO PROTECT STOMACH FROM ASPI...
     Dates: start: 20180410
  4. TRAZODONE [Concomitant]
     Active Substance: TRAZODONE HYDROCHLORIDE
     Dosage: ONE TO TWO HOURS BEFORE BED
     Dates: start: 20181112
  5. ACETYLSALICYLIC ACID [Concomitant]
     Active Substance: ASPIRIN
     Dosage: 1 DOSAGE FORM, QD
     Dates: start: 20180312
  6. NADOLOL. [Concomitant]
     Active Substance: NADOLOL
     Dosage: 2 DOSAGE FORM, QD
     Dates: start: 20180312
  7. GAVISCON ADVANCE                   /01340901/ [Concomitant]
     Dosage: 1 DOSAGE FORM, PRN
     Dates: start: 20190705, end: 20190802
  8. ADCAL                              /00056901/ [Concomitant]
     Active Substance: CARBAZOCHROME
     Dosage: 2 DOSAGE FORM, QD
     Dates: start: 20180315
  9. PARACETAMOL [Concomitant]
     Active Substance: ACETAMINOPHEN
     Dosage: TAKE 1 OR 2 4 TIMES/DAY
     Dates: start: 20120618
  10. LATANOPROST. [Concomitant]
     Active Substance: LATANOPROST
     Dosage: BOTH EYES
     Dates: start: 20180409
  11. FEXOFENADINE [Concomitant]
     Active Substance: FEXOFENADINE HYDROCHLORIDE
     Dosage: 1 DOSAGE FORM, QD
     Dates: start: 20190812, end: 20190911
  12. INDAPAMIDE. [Suspect]
     Active Substance: INDAPAMIDE
     Indication: PRODUCT USED FOR UNKNOWN INDICATION
     Dosage: EACH MORNING
     Route: 065
     Dates: start: 20190829
  13. RISEDRONATE SODIUM. [Concomitant]
     Active Substance: RISEDRONATE SODIUM
     Dosage: 1 DOSAGE FORM, QW
     Dates: start: 20170220

REACTIONS (1)
  - Acute kidney injury [Unknown]

NARRATIVE: CASE EVENT DATE: 20191002
